FAERS Safety Report 8321181-3 (Version None)
Quarter: 2012Q2

REPORT INFORMATION
  Report Type: 
  Country: None (occurrence: None)
  Receive Date: 20120430
  Receipt Date: 20120427
  Transmission Date: 20120825
  Serious: Yes (Death, Hospitalization)
  Sender: FDA-Public Use
  Company Number: SG-BAYER-2012-041152

PATIENT
  Age: 61 Year
  Sex: Male

DRUGS (2)
  1. NEXAVAR TABLET 200 MG [Suspect]
     Dosage: 200 MG, UNK
  2. CIPROFLOXACIN HCL [Suspect]

REACTIONS (1)
  - RASH PAPULAR [None]
